FAERS Safety Report 20069008 (Version 2)
Quarter: 2022Q1

REPORT INFORMATION
  Report Type: Spontaneous
  Country: PL (occurrence: PL)
  Receive Date: 20211115
  Receipt Date: 20220315
  Transmission Date: 20220423
  Serious: Yes (Other)
  Sender: FDA-Public Use
  Company Number: PL-ROCHE-2945029

PATIENT
  Age: 2 Year
  Sex: Male

DRUGS (16)
  1. ENBREL [Suspect]
     Active Substance: ETANERCEPT
     Indication: Graft versus host disease
     Dosage: 10 MG ONCE A WEEK (6 DOSES OVERALL AND THE LAST DOSE ON 14/DEC/2020; DAY 47
     Route: 065
     Dates: end: 20201207
  2. METHYLPREDNISOLONE [Suspect]
     Active Substance: METHYLPREDNISOLONE
     Indication: Graft versus host disease
     Dosage: 2MG/KG BODY WEIGHT
     Route: 065
  3. MABTHERA [Suspect]
     Active Substance: RITUXIMAB
     Indication: Epstein-Barr virus associated lymphoproliferative disorder
     Dosage: 375 MG/M2
     Route: 041
     Dates: start: 2020
  4. TREOSULFAN [Suspect]
     Active Substance: TREOSULFAN
     Indication: Epstein-Barr virus associated lymphoproliferative disorder
     Dosage: 36 G/M2 BSA
     Route: 065
     Dates: start: 202010
  5. FLUDARABINE [Suspect]
     Active Substance: FLUDARABINE PHOSPHATE
     Indication: Epstein-Barr virus associated lymphoproliferative disorder
     Dosage: 5 X 30 MG/M2 BSA
     Route: 065
     Dates: start: 202010
  6. THIOTEPA [Suspect]
     Active Substance: THIOTEPA
     Indication: Epstein-Barr virus associated lymphoproliferative disorder
     Dosage: 1 X 5 MG/KG BODY WEIGHT
     Route: 065
     Dates: start: 202010
  7. THIOTEPA [Suspect]
     Active Substance: THIOTEPA
     Dosage: 1 X 5 MG/KG BODY WEIGHT
     Route: 065
  8. THYMOCYTE IMMUNE GLOBULIN NOS [Suspect]
     Active Substance: THYMOCYTE IMMUNE GLOBULIN NOS
     Indication: Epstein-Barr virus associated lymphoproliferative disorder
     Dosage: 20 MG/KG BODY WEIGHT (5 MG/KG BODY WEIGHT EACH FOR 4 CONSECUTIVE DAYS)
     Route: 065
  9. THYMOCYTE IMMUNE GLOBULIN NOS [Suspect]
     Active Substance: THYMOCYTE IMMUNE GLOBULIN NOS
     Dosage: 7.5 MG/KG
     Route: 065
     Dates: start: 202010
  10. CYCLOPHOSPHAMIDE [Suspect]
     Active Substance: CYCLOPHOSPHAMIDE
     Indication: Prophylaxis against graft versus host disease
     Dosage: 2 X 50 MG/KG BODY WEIGHT
     Route: 065
     Dates: start: 2020
  11. CYCLOSPORINE [Suspect]
     Active Substance: CYCLOSPORINE
     Indication: Epstein-Barr virus associated lymphoproliferative disorder
     Dosage: 1.5 MG/KG BODY WEIGHT
     Route: 065
     Dates: start: 2020
  12. CYCLOSPORINE [Suspect]
     Active Substance: CYCLOSPORINE
     Indication: Prophylaxis against graft versus host disease
  13. MYCOPHENOLATE MOFETIL [Suspect]
     Active Substance: MYCOPHENOLATE MOFETIL
     Indication: Epstein-Barr virus associated lymphoproliferative disorder
     Dosage: 20 MG/KG BODY WEIGHT
     Route: 065
     Dates: start: 2020
  14. MYCOPHENOLATE MOFETIL [Suspect]
     Active Substance: MYCOPHENOLATE MOFETIL
     Indication: Prophylaxis against graft versus host disease
  15. SIMULECT [Suspect]
     Active Substance: BASILIXIMAB
     Indication: Graft versus host disease
     Dosage: 10 MG ONCE A WEEK (4 DOSES OVERALL AND THE LAST DOSE ON 07/DEC/2020)
     Route: 065
     Dates: end: 20201207
  16. VALGANCICLOVIR [Suspect]
     Active Substance: VALGANCICLOVIR
     Indication: Cytomegalovirus infection
     Dosage: UNK
     Route: 048

REACTIONS (4)
  - Device related sepsis [Recovered/Resolved]
  - Proteus infection [Recovered/Resolved]
  - Cytomegalovirus infection reactivation [Unknown]
  - Off label use [Unknown]

NARRATIVE: CASE EVENT DATE: 20210101
